FAERS Safety Report 8580278-3 (Version None)
Quarter: 2012Q3

REPORT INFORMATION
  Report Type: 
  Country: None (occurrence: None)
  Receive Date: 20120808
  Receipt Date: 20120725
  Transmission Date: 20120928
  Serious: Yes (Other)
  Sender: FDA-Public Use
  Company Number: US-MYLANLABS-2012S1015540

PATIENT
  Age: 14 Month
  Sex: Female

DRUGS (1)
  1. MELPHALAN HYDROCHLORIDE [Suspect]
     Indication: RETINOBLASTOMA UNILATERAL
     Dosage: 5MG
     Route: 013

REACTIONS (2)
  - RETINAL ISCHAEMIA [None]
  - ISCHAEMIA [None]
